FAERS Safety Report 25371558 (Version 3)
Quarter: 2025Q4

REPORT INFORMATION
  Report Type: Spontaneous
  Country: JP (occurrence: JP)
  Receive Date: 20250529
  Receipt Date: 20251007
  Transmission Date: 20260117
  Serious: Yes (Hospitalization)
  Sender: ROCHE
  Company Number: JP-ROCHE-10000296954

PATIENT
  Age: 19 Year
  Sex: Female

DRUGS (16)
  1. XOFLUZA [Suspect]
     Active Substance: BALOXAVIR MARBOXIL
     Indication: Influenza
     Route: 048
     Dates: start: 20250505
  2. AMOXICILLIN [Suspect]
     Active Substance: AMOXICILLIN
     Indication: Product used for unknown indication
     Route: 048
     Dates: start: 20250430, end: 20250501
  3. CARBOCYSTEINE [Concomitant]
     Active Substance: CARBOCYSTEINE
     Indication: Sinusitis
     Route: 048
     Dates: start: 20250507, end: 20250508
  4. DEXTROMETHORPHAN [Concomitant]
     Active Substance: DEXTROMETHORPHAN
     Indication: Sinusitis
     Route: 048
     Dates: start: 20250507, end: 20250508
  5. ROXITHROMYCIN [Concomitant]
     Active Substance: ROXITHROMYCIN
     Indication: Sinusitis
     Route: 048
     Dates: start: 20250507, end: 20250508
  6. BETAMETHASONE\DEXCHLORPHENIRAMINE MALEATE [Concomitant]
     Active Substance: BETAMETHASONE\DEXCHLORPHENIRAMINE MALEATE
     Indication: Sinusitis
     Dates: start: 20250507, end: 20250508
  7. CHLORPHENIRAMINE MALEATE [Concomitant]
     Active Substance: CHLORPHENIRAMINE MALEATE
     Dates: start: 20250509
  8. FEXOFENADINE HYDROCHLORIDE [Concomitant]
     Active Substance: FEXOFENADINE HYDROCHLORIDE
     Dosage: 60 MG X 2 TABLETS IN 2 DIVIDED DOSES
  9. FAMOTIDINE [Concomitant]
     Active Substance: FAMOTIDINE
  10. TIARAMIDE [Concomitant]
     Active Substance: TIARAMIDE
     Indication: Sinusitis
     Route: 048
     Dates: start: 20250507, end: 20250508
  11. LOXOPROFEN SODIUM [Concomitant]
     Active Substance: LOXOPROFEN SODIUM
     Indication: Sinusitis
     Route: 048
     Dates: start: 20250507, end: 20250508
  12. METHYLPREDNISOLONE SODIUM SUCCINATE [Concomitant]
     Active Substance: METHYLPREDNISOLONE SODIUM SUCCINATE
  13. HYDROCORTISONE BUTYRATE [Concomitant]
     Active Substance: HYDROCORTISONE BUTYRATE
  14. BETAMETHASONE BUTYRATE PROPIONATE [Concomitant]
     Active Substance: BETAMETHASONE BUTYRATE PROPIONATE
  15. PREDNISOLONE [Concomitant]
     Active Substance: PREDNISOLONE
     Dates: start: 20250523
  16. OLOPATADINE HYDROCHLORIDE [Concomitant]
     Active Substance: OLOPATADINE HYDROCHLORIDE
     Dosage: 5 MG X 2 TABLETS IN 2 DIVIDED DOSES.

REACTIONS (1)
  - Drug eruption [Recovering/Resolving]

NARRATIVE: CASE EVENT DATE: 20250508
